FAERS Safety Report 5069235-1 (Version None)
Quarter: 2006Q3

REPORT INFORMATION
  Report Type: 
  Country: None (occurrence: None)
  Receive Date: 20060731
  Receipt Date: 20060719
  Transmission Date: 20061208
  Serious: Yes (Congenital Anomaly, Other)
  Sender: FDA-Public Use
  Company Number: 2006066120

PATIENT

DRUGS (8)
  1. VIRACEPT [Suspect]
     Indication: ASYMPTOMATIC HIV INFECTION
     Dosage: 2500 MG, ORAL
     Route: 048
     Dates: start: 20050603, end: 20051227
  2. NORVIR [Suspect]
     Indication: ASYMPTOMATIC HIV INFECTION
     Dosage: 100 MG, ORAL
     Route: 048
     Dates: start: 20040316, end: 20050330
  3. REYATAZ [Suspect]
     Indication: ASYMPTOMATIC HIV INFECTION
     Dosage: 300 MG, ORAL
     Route: 048
     Dates: start: 20040316, end: 20050330
  4. TRUVADA [Suspect]
     Indication: ASYMPTOMATIC HIV INFECTION
     Dosage: 500 MG, ORAL
     Route: 048
     Dates: start: 20040316, end: 20050330
  5. KALETRA [Suspect]
     Indication: ASYMPTOMATIC HIV INFECTION
     Dosage: 996 MG, ORAL
     Route: 048
     Dates: start: 20050330, end: 20050525
  6. TRIZIVIR [Suspect]
     Indication: ASYMPTOMATIC HIV INFECTION
     Dosage: 1500 MG, ORAL
     Route: 048
     Dates: start: 20050330, end: 20050525
  7. COMBIVIR [Suspect]
     Indication: ASYMPTOMATIC HIV INFECTION
     Dosage: 900 MG, ORAL
     Route: 048
     Dates: start: 20050603, end: 20051227
  8. RETROVIR [Suspect]
     Indication: ASYMPTOMATIC HIV INFECTION
     Dosage: SEE IMAGE
     Route: 042
     Dates: start: 20051103, end: 20051103

REACTIONS (4)
  - CONVULSION NEONATAL [None]
  - DRUG EXPOSURE DURING PREGNANCY [None]
  - HYPOTONIA NEONATAL [None]
  - TRISOMY 15 [None]
